FAERS Safety Report 9162040 (Version 1)
Quarter: 2013Q1

REPORT INFORMATION
  Report Type: Spontaneous
  Country: IT (occurrence: None)
  Receive Date: 20130222
  Receipt Date: 20130222
  Transmission Date: 20140127
  Serious: Yes (Hospitalization, Other)
  Sender: FDA-Public Use
  Company Number: SYM-2013-00451

PATIENT
  Age: 91 Year
  Sex: Female

DRUGS (8)
  1. ENAPREN [Suspect]
     Route: 048
     Dates: start: 20111115, end: 20121114
  2. LASIX [Suspect]
     Dosage: 25 UNKNOWN
     Route: 048
  3. OVO-NORM [Suspect]
     Route: 048
  4. ASPIRIN [Concomitant]
  5. NITROGLYCERIN (GLYCERYL TRINITRATE) (UNKNOWN) (GLYCERYL TRINITRATE) [Concomitant]
  6. CLOPIDOGREL (CLOPIDOGREL) (UNKNOWN) (CLOPIDOGREL) [Concomitant]
  7. EUTTROX (LEVOTHYROXINE SODIUM) (UNKNOWN)(LEVOTHYROXNE I SODIUM) [Concomitant]
  8. SEQUACOR (BISOPROLOL FUMARATE) (UNKNOWN) (BISOPROLOL FUMARATE) [Concomitant]

REACTIONS (3)
  - Hypoglycaemia [None]
  - Renal failure chronic [None]
  - Condition aggravated [None]
